FAERS Safety Report 5571148-3 (Version None)
Quarter: 2007Q4

REPORT INFORMATION
  Report Type: 
  Country: None (occurrence: None)
  Receive Date: 20071221
  Receipt Date: 20061114
  Transmission Date: 20080405
  Serious: No
  Sender: FDA-Public Use
  Company Number: A0627708A

PATIENT
  Age: 72 Year
  Sex: Female
  Weight: 63.6 kg

DRUGS (4)
  1. FLUTICASONE PROPIONATE [Suspect]
     Indication: SEASONAL ALLERGY
     Dosage: 2SPR AT NIGHT
     Route: 045
     Dates: start: 20061109
  2. DECONSAL II [Concomitant]
     Dosage: 1CAP PER DAY
     Route: 048
  3. CLIMARA [Concomitant]
     Route: 062
  4. OCEAN NASAL SPRAY [Concomitant]
     Dosage: 1SPR AT NIGHT
     Route: 045

REACTIONS (1)
  - HEADACHE [None]
